FAERS Safety Report 12187300 (Version 1)
Quarter: 2016Q1

REPORT INFORMATION
  Report Type: Report from Study
  Country: US (occurrence: US)
  Receive Date: 20160317
  Receipt Date: 20160317
  Transmission Date: 20160526
  Serious: Yes (Other)
  Sender: FDA-Public Use
  Company Number: US-REGENERON PHARMACEUTICALS, INC.-2016-13738

PATIENT

DRUGS (2)
  1. EYLEA [Suspect]
     Active Substance: AFLIBERCEPT
     Indication: VISUAL IMPAIRMENT
  2. EYLEA [Suspect]
     Active Substance: AFLIBERCEPT
     Indication: EYE DISORDER
     Dosage: UNK, AS NECESSARY
     Route: 031

REACTIONS (5)
  - Eye pain [Unknown]
  - Headache [Unknown]
  - Facial pain [Unknown]
  - Intraocular pressure increased [Unknown]
  - Off label use [Unknown]
